FAERS Safety Report 6528807-5 (Version None)
Quarter: 2010Q1

REPORT INFORMATION
  Report Type: 
  Country: None (occurrence: None)
  Receive Date: 20100106
  Receipt Date: 20091228
  Transmission Date: 20100710
  Serious: Yes (Hospitalization)
  Sender: FDA-Public Use
  Company Number: FR-ELI_LILLY_AND_COMPANY-FR200912000159

PATIENT
  Age: 34 Year
  Sex: Male
  Weight: 70 kg

DRUGS (3)
  1. HUMALOG MIX 75/25 [Suspect]
     Indication: TYPE 1 DIABETES MELLITUS
     Dosage: 40 IU, UNK
     Route: 058
  2. HUMALOG MIX 75/25 [Suspect]
     Dosage: 40 IU, EACH EVENING
     Route: 058
     Dates: start: 20090101
  3. HUMALOG MIX 75/25 [Suspect]
     Dosage: 46 IU, UNKNOWN
     Route: 058
     Dates: start: 20091101

REACTIONS (7)
  - ASTHENOPIA [None]
  - BLOOD GLUCOSE INCREASED [None]
  - FOOD CRAVING [None]
  - HEADACHE [None]
  - MALAISE [None]
  - MIDDLE INSOMNIA [None]
  - POLLAKIURIA [None]
